FAERS Safety Report 24989534 (Version 3)
Quarter: 2025Q1

REPORT INFORMATION
  Report Type: Spontaneous
  Country: US (occurrence: US)
  Receive Date: 20250220
  Receipt Date: 20250311
  Transmission Date: 20250409
  Serious: Yes (Other)
  Sender: ABBVIE
  Company Number: US-ABBVIE-6136390

PATIENT
  Age: 33 Year
  Sex: Female
  Weight: 68.946 kg

DRUGS (2)
  1. LILETTA [Suspect]
     Active Substance: LEVONORGESTREL
     Indication: Product used for unknown indication
     Route: 015
     Dates: start: 20241210
  2. VITAMINS [Concomitant]
     Active Substance: VITAMINS
     Indication: Pregnancy
     Dates: start: 20210602

REACTIONS (1)
  - Retained placenta operation [Unknown]

NARRATIVE: CASE EVENT DATE: 20250116
